FAERS Safety Report 4652317-3 (Version None)
Quarter: 2005Q2

REPORT INFORMATION
  Report Type: 
  Country: None (occurrence: None)
  Receive Date: 20050504
  Receipt Date: 20050330
  Transmission Date: 20051028
  Serious: Yes (Other)
  Sender: FDA-Public Use
  Company Number: US-GLAXOSMITHKLINE-A0551926A

PATIENT
  Age: 32 Year
  Sex: Female

DRUGS (2)
  1. LAMICTAL [Suspect]
     Indication: EPILEPSY
     Route: 048
     Dates: start: 20050319
  2. NO CONCURRENT MEDICATION [Concomitant]

REACTIONS (5)
  - ERYTHEMA [None]
  - LOCAL SWELLING [None]
  - LYMPHADENOPATHY [None]
  - MENSTRUAL DISORDER [None]
  - RASH [None]
